FAERS Safety Report 7796157-5 (Version None)
Quarter: 2011Q4

REPORT INFORMATION
  Report Type: 
  Country: None (occurrence: None)
  Receive Date: 20111004
  Receipt Date: 20111001
  Transmission Date: 20120403
  Serious: Yes (Hospitalization, Other)
  Sender: FDA-Public Use
  Company Number: IT-PFIZER INC-2011234888

PATIENT
  Age: 14 Year
  Sex: Female

DRUGS (2)
  1. ZOLOFT [Suspect]
     Dosage: 50 MG DAILY
     Route: 048
     Dates: start: 20110820, end: 20110822
  2. ZYPREXA [Concomitant]

REACTIONS (3)
  - PERIORBITAL HAEMATOMA [None]
  - CONJUNCTIVAL HAEMORRHAGE [None]
  - HEADACHE [None]
